FAERS Safety Report 26012741 (Version 1)
Quarter: 2025Q4

REPORT INFORMATION
  Report Type: Spontaneous
  Country: US (occurrence: US)
  Receive Date: 20251107
  Receipt Date: 20251107
  Transmission Date: 20260118
  Serious: Yes (Death)
  Sender: WALMART
  Company Number: US-Walmart-2188100

PATIENT
  Age: 3 Year
  Sex: Male

DRUGS (1)
  1. ISOPROPYL ALCOHOL [Suspect]
     Active Substance: ISOPROPYL ALCOHOL

REACTIONS (2)
  - Thermal burn [Fatal]
  - Respiratory fume inhalation disorder [Fatal]
